FAERS Safety Report 7472042-3 (Version None)
Quarter: 2011Q2

REPORT INFORMATION
  Report Type: 
  Country: None (occurrence: None)
  Receive Date: 20110511
  Receipt Date: 20101027
  Transmission Date: 20111010
  Serious: Yes (Life-Threatening)
  Sender: FDA-Public Use
  Company Number: A0889112A

PATIENT
  Age: 60 Year
  Sex: Female

DRUGS (2)
  1. XELODA [Concomitant]
  2. TYKERB [Suspect]
     Indication: BREAST CANCER
     Dosage: 1250MG PER DAY
     Route: 048
     Dates: start: 20100521, end: 20100101

REACTIONS (1)
  - HEPATOTOXICITY [None]
